FAERS Safety Report 19808350 (Version 2)
Quarter: 2021Q4

REPORT INFORMATION
  Report Type: Spontaneous
  Country: US (occurrence: US)
  Receive Date: 20210909
  Receipt Date: 20211230
  Transmission Date: 20220303
  Serious: Yes (Hospitalization)
  Sender: FDA-Public Use
  Company Number: US-BRISTOL-MYERS SQUIBB COMPANY-BMS-2021-090523

PATIENT
  Age: 53 Year
  Sex: Male

DRUGS (6)
  1. ORENCIA [Suspect]
     Active Substance: ABATACEPT
     Indication: Acute myeloid leukaemia
     Dosage: 1 SYRINGE ONCE WEEKLY
     Route: 058
     Dates: start: 20210809
  2. ORENCIA [Suspect]
     Active Substance: ABATACEPT
     Indication: Acute myeloid leukaemia
     Dosage: 1 SYRINGE ONCE WEEKLY
     Route: 058
     Dates: start: 20210809
  3. ORENCIA [Suspect]
     Active Substance: ABATACEPT
     Indication: Graft versus host disease
  4. ORENCIA [Suspect]
     Active Substance: ABATACEPT
     Indication: Graft versus host disease
  5. ORENCIA [Suspect]
     Active Substance: ABATACEPT
     Indication: Embolism arterial
  6. ORENCIA [Suspect]
     Active Substance: ABATACEPT
     Indication: Embolism arterial

REACTIONS (2)
  - Hospitalisation [Unknown]
  - Intentional product use issue [Unknown]
